FAERS Safety Report 5680566-4 (Version None)
Quarter: 2008Q1

REPORT INFORMATION
  Report Type: 
  Country: None (occurrence: None)
  Receive Date: 20080326
  Receipt Date: 20080319
  Transmission Date: 20080703
  Serious: Yes (Other)
  Sender: FDA-Public Use
  Company Number: US-JNJFOC-20080103556

PATIENT
  Sex: Female
  Weight: 69.85 kg

DRUGS (3)
  1. LEVAQUIN [Suspect]
     Indication: UPPER RESPIRATORY TRACT INFECTION
     Route: 048
  2. LEVAQUIN [Suspect]
     Indication: SINUSITIS
     Route: 048
  3. MUCINEX [Concomitant]
     Indication: INFECTION
     Route: 048

REACTIONS (10)
  - DIARRHOEA [None]
  - DIZZINESS [None]
  - ERYTHEMA [None]
  - FALL [None]
  - FEELING ABNORMAL [None]
  - FEELING COLD [None]
  - HYPERHIDROSIS [None]
  - HYPOTENSION [None]
  - NAUSEA [None]
  - PALLOR [None]
